FAERS Safety Report 10142517 (Version 1)
Quarter: 2014Q2

REPORT INFORMATION
  Report Type: Spontaneous
  Country: DE (occurrence: DE)
  Receive Date: 20140430
  Receipt Date: 20140430
  Transmission Date: 20141212
  Serious: Yes (Other)
  Sender: FDA-Public Use
  Company Number: DE-ALEXION PHARMACEUTICALS INC.-A201304217

PATIENT
  Age: 24 Year
  Sex: Female

DRUGS (7)
  1. SOLIRIS 300MG [Suspect]
     Indication: HAEMOLYTIC URAEMIC SYNDROME
     Dosage: 900 MG, QW X4
     Route: 042
  2. SOLIRIS 300MG [Suspect]
     Dosage: 1200 UNK, Q2W
     Route: 042
  3. BASILIXIMAB [Concomitant]
  4. TACROLIMUS [Concomitant]
     Dosage: TAPERED
  5. MYCOPHENOLATE [Concomitant]
  6. PREDNISONE [Concomitant]
     Dosage: 3 DAY PULSED HIGH DOSE COURSE
  7. RITUXIMAB [Concomitant]
     Dosage: 375 MG/M2, SINGLE

REACTIONS (5)
  - Cytomegalovirus viraemia [Unknown]
  - BK virus infection [Unknown]
  - Transplant rejection [Unknown]
  - Urinary tract infection [Unknown]
  - Inappropriate schedule of drug administration [Unknown]
